FAERS Safety Report 6654677-0 (Version None)
Quarter: 2010Q1

REPORT INFORMATION
  Report Type: 
  Country: None (occurrence: None)
  Receive Date: 20100326
  Receipt Date: 20100317
  Transmission Date: 20100710
  Serious: Yes (Hospitalization)
  Sender: FDA-Public Use
  Company Number: US-MERCK-1003USA04151

PATIENT
  Age: 59 Year
  Sex: Female

DRUGS (3)
  1. DECADRON [Suspect]
     Indication: MULTIPLE MYELOMA
     Route: 065
  2. ANTINEOPLASTIC (UNSPECIFIED) [Suspect]
     Indication: MULTIPLE MYELOMA
     Route: 065
  3. VALPROIC ACID [Suspect]
     Indication: MULTIPLE MYELOMA
     Route: 048

REACTIONS (1)
  - PSYCHOTIC DISORDER [None]
